FAERS Safety Report 10714103 (Version 1)
Quarter: 2015Q1

REPORT INFORMATION
  Report Type: Spontaneous
  Country: BR (occurrence: BR)
  Receive Date: 20150115
  Receipt Date: 20150115
  Transmission Date: 20150721
  Serious: Yes (Hospitalization)
  Sender: FDA-Public Use
  Company Number: BR-ELI_LILLY_AND_COMPANY-BR201501004631

PATIENT
  Age: 56 Year
  Sex: Male
  Weight: 93 kg

DRUGS (7)
  1. ROSUVASTATIN CALCIUM. [Suspect]
     Active Substance: ROSUVASTATIN CALCIUM
     Indication: HYPERCHOLESTEROLAEMIA
     Dosage: 10 MG, QD
     Route: 048
     Dates: start: 201303
  2. VILDAGLIPTIN [Suspect]
     Active Substance: VILDAGLIPTIN
     Indication: DIABETES MELLITUS
     Dosage: 50 MG, QD
     Route: 048
     Dates: start: 201303
  3. ATENOLOL. [Concomitant]
     Active Substance: ATENOLOL
     Dosage: UNK
     Route: 065
     Dates: start: 2013
  4. ACETYLSALICYLIC ACID [Suspect]
     Active Substance: ASPIRIN
     Indication: MYOCARDIAL INFARCTION
     Dosage: 10 MG, QD
     Route: 048
     Dates: start: 201303
  5. SILYBUM MARIANUM SEED [Suspect]
     Active Substance: MILK THISTLE
     Indication: HEPATIC STEATOSIS
     Dosage: 50 MG, QD
     Route: 048
     Dates: start: 201303
  6. PRASUGREL HYDROCHLORIDE [Suspect]
     Active Substance: PRASUGREL HYDROCHLORIDE
     Indication: MYOCARDIAL INFARCTION
     Dosage: 10 MG, QD
     Route: 048
     Dates: start: 201303, end: 20150103
  7. DIAZEPAM. [Concomitant]
     Active Substance: DIAZEPAM
     Dosage: UNK
     Route: 065
     Dates: start: 2005

REACTIONS (7)
  - Head discomfort [Recovered/Resolved]
  - Enzyme abnormality [Recovered/Resolved]
  - Dysphonia [Recovered/Resolved]
  - No adverse event [Unknown]
  - Intentional product misuse [Unknown]
  - Cerebrovascular accident [Recovered/Resolved]
  - Labyrinthitis [Recovered/Resolved]

NARRATIVE: CASE EVENT DATE: 201307
